FAERS Safety Report 15180942 (Version 3)
Quarter: 2018Q4

REPORT INFORMATION
  Report Type: Spontaneous
  Country: US (occurrence: US)
  Receive Date: 20180723
  Receipt Date: 20181012
  Transmission Date: 20190204
  Serious: Yes (Other)
  Sender: FDA-Public Use
  Company Number: US-BAYER-2018-136905

PATIENT
  Age: 24 Year
  Sex: Female

DRUGS (1)
  1. MIRENA [Suspect]
     Active Substance: LEVONORGESTREL
     Indication: CONTRACEPTION
     Dosage: 20 MCG/24HR, CONT
     Route: 015
     Dates: start: 20180629, end: 20180629

REACTIONS (2)
  - Complication of device insertion [None]
  - Embedded device [None]

NARRATIVE: CASE EVENT DATE: 20180629
